FAERS Safety Report 8302675-3 (Version None)
Quarter: 2012Q2

REPORT INFORMATION
  Report Type: 
  Country: None (occurrence: None)
  Receive Date: 20120420
  Receipt Date: 20120413
  Transmission Date: 20120825
  Serious: No
  Sender: FDA-Public Use
  Company Number: US-PFIZER INC-2012092825

PATIENT
  Sex: Female
  Weight: 140 kg

DRUGS (23)
  1. INSULIN [Concomitant]
     Indication: DIABETES MELLITUS
     Dosage: 75/25 AT 10 UNITS, 3X/DAY
  2. STARLIX [Concomitant]
     Indication: DIABETES MELLITUS
     Dosage: 120 MG, 2X/DAY
  3. PENICILLIN G [Suspect]
     Dosage: UNK
  4. MEDROL [Suspect]
     Indication: HYPERSENSITIVITY
     Dosage: 4 MG, UNK
     Dates: start: 20120401, end: 20120401
  5. BACTRIM [Suspect]
     Dosage: UNK
  6. GLYBURIDE [Concomitant]
     Indication: DIABETES MELLITUS
     Dosage: 10 MG, 3X/DAY
     Route: 048
  7. CORTISPORIN [Suspect]
     Dosage: UNK
  8. AMLODIPINE BESYLATE [Suspect]
     Dosage: UNK
  9. SIMVASTATIN [Suspect]
     Indication: HYPERLIPIDAEMIA
     Dosage: UNK
  10. COZAAR [Concomitant]
     Dosage: 100 MG, DAILY
  11. FUROSEMIDE [Concomitant]
     Indication: OEDEMA
  12. PROPRANOLOL [Concomitant]
     Indication: CORONARY ARTERY DISEASE
     Dosage: 40 MG, 4X/DAY
  13. ALBUTEROL [Concomitant]
  14. ATORVASTATIN CALCIUM [Suspect]
     Indication: HYPERLIPIDAEMIA
     Dosage: UNK
     Dates: start: 20120401, end: 20120401
  15. SIMVASTATIN [Suspect]
     Indication: MYOCARDIAL INFARCTION
  16. METFORMIN [Concomitant]
     Indication: DIABETES MELLITUS
     Dosage: 850 MG, 3X/DAY
  17. SYNTHROID [Concomitant]
     Indication: HYPOTHYROIDISM
     Dosage: 50 UG, DAILY
     Route: 048
  18. ALBUTEROL [Concomitant]
     Indication: ASTHMA
     Dosage: 2.5/3 MG/ML EVERY FOUR HOURS VIA NEBULIZER AS NEEDED
  19. SIMVASTATIN [Suspect]
     Indication: CORONARY ARTERY DISEASE
  20. FUROSEMIDE [Concomitant]
     Indication: ANGIOPATHY
     Dosage: 40 MG, AS NEEDED
  21. ATORVASTATIN CALCIUM [Suspect]
     Indication: CORONARY ARTERY DISEASE
  22. ATORVASTATIN CALCIUM [Suspect]
     Indication: MYOCARDIAL INFARCTION
  23. GLIMEPIRIDE [Concomitant]
     Indication: DIABETES MELLITUS
     Dosage: 4 MG, 3X/DAY

REACTIONS (5)
  - HYPERSENSITIVITY [None]
  - PRURITUS GENERALISED [None]
  - BLOOD GLUCOSE INCREASED [None]
  - RASH [None]
  - OEDEMA PERIPHERAL [None]
